FAERS Safety Report 21120936 (Version 2)
Quarter: 2022Q3

REPORT INFORMATION
  Report Type: Spontaneous
  Country: US (occurrence: US)
  Receive Date: 20220722
  Receipt Date: 20220826
  Transmission Date: 20221026
  Serious: No
  Sender: FDA-Public Use
  Company Number: US-KYOWAKIRIN-2022BKK011362

PATIENT

DRUGS (1)
  1. SANCUSO [Suspect]
     Active Substance: GRANISETRON
     Indication: Product used for unknown indication
     Dosage: 3.1 MG, QD
     Route: 061
     Dates: start: 20220527

REACTIONS (3)
  - Rash [Unknown]
  - Rash [Unknown]
  - Application site rash [Unknown]

NARRATIVE: CASE EVENT DATE: 20220720
